FAERS Safety Report 24659163 (Version 1)
Quarter: 2024Q4

REPORT INFORMATION
  Report Type: Spontaneous
  Country: US (occurrence: None)
  Receive Date: 20241122
  Receipt Date: 20241122
  Transmission Date: 20250115
  Serious: Yes (Hospitalization, Other)
  Sender: Public
  Company Number: None

PATIENT
  Age: 52 Year
  Sex: Female
  Weight: 65.7 kg

DRUGS (19)
  1. NALTREXONE [Suspect]
     Active Substance: NALTREXONE
     Indication: Alcoholism
     Dates: start: 20241111, end: 20241121
  2. BUPROPION [Suspect]
     Active Substance: BUPROPION
  3. NADOLOL [Suspect]
     Active Substance: NADOLOL
  4. BENZOCAINE\MENTHOL [Suspect]
     Active Substance: BENZOCAINE\MENTHOL
  5. Lo lo estrin [Concomitant]
  6. Potassium Kclor [Concomitant]
  7. STELARA [Concomitant]
     Active Substance: USTEKINUMAB
  8. PROLIA [Concomitant]
     Active Substance: DENOSUMAB
  9. Methoarbamol [Concomitant]
  10. B vitamin [Concomitant]
  11. C [Concomitant]
  12. VITAMIN D3 [Concomitant]
     Active Substance: CHOLECALCIFEROL
  13. FISH OIL [Concomitant]
     Active Substance: FISH OIL
  14. CALCIUM [Concomitant]
     Active Substance: CALCIUM
  15. MAGNESIUM [Concomitant]
     Active Substance: MAGNESIUM
  16. ZINC [Concomitant]
     Active Substance: ZINC
  17. COENZYME Q10 [Concomitant]
     Active Substance: DIETARY SUPPLEMENT\UBIDECARENONE
  18. Pine Mountain (Chinese herbs) [Concomitant]
  19. 303 (Chinese herbs) [Concomitant]

REACTIONS (17)
  - Palpitations [None]
  - Chest pain [None]
  - Hyperhidrosis [None]
  - Dry mouth [None]
  - Dizziness [None]
  - Anxiety [None]
  - Mania [None]
  - Euphoric mood [None]
  - Feeling abnormal [None]
  - Stress [None]
  - Paraesthesia [None]
  - Pain [None]
  - Musculoskeletal stiffness [None]
  - Drug interaction [None]
  - Carditis [None]
  - Blood pressure increased [None]
  - Heart rate increased [None]

NARRATIVE: CASE EVENT DATE: 20241120
